FAERS Safety Report 21460026 (Version 1)
Quarter: 2022Q4

REPORT INFORMATION
  Report Type: Spontaneous
  Country: GB (occurrence: GB)
  Receive Date: 20221014
  Receipt Date: 20221014
  Transmission Date: 20230112
  Serious: Yes (Life-Threatening, Hospitalization)
  Sender: FDA-Public Use
  Company Number: GB-VERTEX PHARMACEUTICALS-2022-015204

PATIENT

DRUGS (1)
  1. ELEXACAFTOR\IVACAFTOR\TEZACAFTOR [Suspect]
     Active Substance: ELEXACAFTOR\IVACAFTOR\TEZACAFTOR
     Indication: Cystic fibrosis
     Dosage: UNK FREQ
     Route: 048

REACTIONS (4)
  - Lung assist device therapy [Unknown]
  - Endotracheal intubation [Unknown]
  - Intensive care [Unknown]
  - Product dose omission issue [Unknown]
